FAERS Safety Report 11652083 (Version 5)
Quarter: 2016Q2

REPORT INFORMATION
  Report Type: Spontaneous
  Country: US (occurrence: US)
  Receive Date: 20151022
  Receipt Date: 20160404
  Transmission Date: 20160815
  Serious: Yes (Hospitalization)
  Sender: FDA-Public Use
  Company Number: US-PFIZER INC-2015351749

PATIENT
  Age: 69 Year
  Sex: Female
  Weight: 60 kg

DRUGS (8)
  1. LYRICA [Suspect]
     Active Substance: PREGABALIN
     Indication: NEURALGIA
     Dosage: 50 MG, 3X/DAY
     Dates: start: 201507
  2. ESTRACE [Concomitant]
     Active Substance: ESTRADIOL
     Indication: OESTROGEN DEFICIENCY
     Dosage: 3 DF, WEEKLY
     Route: 067
     Dates: start: 1990
  3. LYRICA [Suspect]
     Active Substance: PREGABALIN
     Dosage: 50 MG, 2X/DAY
     Dates: start: 201510
  4. SULFAMERAZINE/TRIMETHOPRIM [Concomitant]
     Indication: PROPHYLAXIS
     Dosage: 0.5 DF, 1X/DAY AT NIGHT
     Dates: start: 2015
  5. ESTRACE [Concomitant]
     Active Substance: ESTRADIOL
     Indication: CYSTITIS
  6. LISINOPRIL HCTZ [Concomitant]
     Active Substance: HYDROCHLOROTHIAZIDE\LISINOPRIL
     Indication: HYPERTENSION
     Dosage: 20-25 MG, 1X/DAY
     Dates: start: 2012
  7. ELMIRON [Concomitant]
     Active Substance: PENTOSAN POLYSULFATE SODIUM
     Indication: CYSTITIS NONINFECTIVE
     Dosage: 100 MG, 3X/DAY
     Dates: start: 2010
  8. OMEPRAZOLE. [Concomitant]
     Active Substance: OMEPRAZOLE
     Indication: GASTROOESOPHAGEAL REFLUX DISEASE
     Dosage: 20 MG, 1X/DAY
     Dates: start: 1989

REACTIONS (9)
  - Weight increased [Not Recovered/Not Resolved]
  - Pollakiuria [Recovered/Resolved]
  - Condition aggravated [Recovered/Resolved]
  - Increased appetite [Not Recovered/Not Resolved]
  - Oedema peripheral [Not Recovered/Not Resolved]
  - Drug ineffective [Recovered/Resolved]
  - Pain [Recovered/Resolved]
  - Infection [Recovered/Resolved]
  - Urinary incontinence [Not Recovered/Not Resolved]

NARRATIVE: CASE EVENT DATE: 2015
